FAERS Safety Report 15558853 (Version 3)
Quarter: 2019Q1

REPORT INFORMATION
  Report Type: Report from Study
  Country: None (occurrence: US)
  Receive Date: 20181029
  Receipt Date: 20190310
  Transmission Date: 20190417
  Serious: Yes (Hospitalization)
  Sender: FDA-Public Use
  Company Number: US-ABBVIE-18K-163-2470876-00

PATIENT
  Sex: Male

DRUGS (7)
  1. HUMIRA [Suspect]
     Active Substance: ADALIMUMAB
     Indication: CROHN^S DISEASE
     Dosage: DAY 1
     Route: 058
     Dates: start: 20180824, end: 20180824
  2. HUMIRA [Suspect]
     Active Substance: ADALIMUMAB
     Route: 058
     Dates: start: 201810
  3. HUMIRA [Suspect]
     Active Substance: ADALIMUMAB
     Dosage: LOADING DOSE
     Route: 058
     Dates: start: 20180907, end: 20180907
  4. HUMIRA [Suspect]
     Active Substance: ADALIMUMAB
     Route: 058
     Dates: start: 2018, end: 2018
  5. IMURAN [Concomitant]
     Active Substance: AZATHIOPRINE
     Indication: PRODUCT USED FOR UNKNOWN INDICATION
  6. MESALAMINE. [Concomitant]
     Active Substance: MESALAMINE
     Indication: PRODUCT USED FOR UNKNOWN INDICATION
  7. UCERIS [Concomitant]
     Active Substance: BUDESONIDE
     Indication: PRODUCT USED FOR UNKNOWN INDICATION

REACTIONS (31)
  - Fear [Recovered/Resolved]
  - Weight fluctuation [Unknown]
  - Dehydration [Unknown]
  - Frequent bowel movements [Recovered/Resolved]
  - Haematochezia [Recovered/Resolved]
  - Decreased appetite [Recovered/Resolved]
  - Rectal haemorrhage [Recovered/Resolved]
  - Weight decreased [Recovered/Resolved]
  - Loss of personal independence in daily activities [Recovered/Resolved]
  - Anxiety [Recovered/Resolved]
  - Insomnia [Recovered/Resolved]
  - Diarrhoea [Not Recovered/Not Resolved]
  - Injection site bruising [Recovered/Resolved]
  - Abdominal pain [Recovered/Resolved]
  - Loss of personal independence in daily activities [Not Recovered/Not Resolved]
  - Weight decreased [Recovered/Resolved]
  - Decreased appetite [Recovered/Resolved]
  - Asthenia [Unknown]
  - Dizziness [Unknown]
  - Paraesthesia [Recovered/Resolved]
  - Nausea [Recovered/Resolved]
  - Diarrhoea [Recovered/Resolved]
  - Frequent bowel movements [Recovered/Resolved]
  - Therapeutic response shortened [Unknown]
  - Rectal haemorrhage [Recovered/Resolved]
  - Abdominal pain upper [Not Recovered/Not Resolved]
  - Anorectal discomfort [Recovered/Resolved]
  - Depressed mood [Recovered/Resolved]
  - Hypoaesthesia [Recovered/Resolved]
  - Dyspnoea [Unknown]
  - Blood iron decreased [Unknown]

NARRATIVE: CASE EVENT DATE: 2018
